FAERS Safety Report 21330395 (Version 2)
Quarter: 2022Q4

REPORT INFORMATION
  Report Type: Spontaneous
  Country: CA (occurrence: CA)
  Receive Date: 20220913
  Receipt Date: 20221114
  Transmission Date: 20230112
  Serious: Yes (Hospitalization, Other)
  Sender: FDA-Public Use
  Company Number: CA-PFIZER INC-202201150569

PATIENT
  Age: 20 Year
  Sex: Female
  Weight: 47 kg

DRUGS (40)
  1. ERYTHROMYCIN [Suspect]
     Active Substance: ERYTHROMYCIN
     Indication: Impaired gastric emptying
     Dosage: UNK
     Route: 065
  2. DOMPERIDONE [Suspect]
     Active Substance: DOMPERIDONE
     Indication: Impaired gastric emptying
     Dosage: UNK
     Route: 065
  3. HALOPERIDOL [Suspect]
     Active Substance: HALOPERIDOL
     Indication: Impaired gastric emptying
     Dosage: UNK
     Route: 065
  4. KETAMINE [Suspect]
     Active Substance: KETAMINE
     Indication: Impaired gastric emptying
     Dosage: UNK
     Route: 065
  5. METOCLOPRAMIDE [Suspect]
     Active Substance: METOCLOPRAMIDE
     Indication: Vomiting
     Dosage: UNK
     Route: 065
  6. METOCLOPRAMIDE [Suspect]
     Active Substance: METOCLOPRAMIDE
     Indication: Nausea
  7. NABILONE [Suspect]
     Active Substance: NABILONE
     Indication: Impaired gastric emptying
     Dosage: UNK
     Route: 065
  8. ONDANSETRON [Suspect]
     Active Substance: ONDANSETRON
     Indication: Impaired gastric emptying
     Dosage: UNK
     Route: 065
  9. PRUCALOPRIDE SUCCINATE [Suspect]
     Active Substance: PRUCALOPRIDE SUCCINATE
     Indication: Impaired gastric emptying
     Dosage: UNK
     Route: 065
  10. FLUDROCORTISONE [Concomitant]
     Active Substance: FLUDROCORTISONE
     Indication: Orthostatic hypotension
     Dosage: 0.05 MG, UNK
     Route: 065
  11. FLUDROCORTISONE [Concomitant]
     Active Substance: FLUDROCORTISONE
     Dosage: 0.05 MG, EVERY 12 HOURS
     Route: 065
  12. INSULIN DEGLUDEC [Concomitant]
     Active Substance: INSULIN DEGLUDEC
     Indication: Type 1 diabetes mellitus
     Dosage: 6 IU
     Route: 065
  13. INSULIN DEGLUDEC [Concomitant]
     Active Substance: INSULIN DEGLUDEC
     Dosage: 4 IU
     Route: 065
  14. INSULIN DEGLUDEC [Concomitant]
     Active Substance: INSULIN DEGLUDEC
     Dosage: 18 IU
     Route: 065
  15. INSULIN DEGLUDEC [Concomitant]
     Active Substance: INSULIN DEGLUDEC
     Dosage: 22 IU
     Route: 065
  16. INSULIN DEGLUDEC [Concomitant]
     Active Substance: INSULIN DEGLUDEC
     Dosage: 8 IU
     Route: 065
  17. INSULIN DEGLUDEC [Concomitant]
     Active Substance: INSULIN DEGLUDEC
     Dosage: 18 IU, 1X/DAY
     Route: 065
  18. INSULIN DEGLUDEC [Concomitant]
     Active Substance: INSULIN DEGLUDEC
     Dosage: 8 IU, 1X/DAY
     Route: 065
  19. INSULIN DEGLUDEC [Concomitant]
     Active Substance: INSULIN DEGLUDEC
     Dosage: 6 IU, 1X/DAY
     Route: 065
  20. INSULIN DEGLUDEC [Concomitant]
     Active Substance: INSULIN DEGLUDEC
     Dosage: 22 IU, 1X/DAY
     Route: 065
  21. INSULIN DEGLUDEC [Concomitant]
     Active Substance: INSULIN DEGLUDEC
     Dosage: 4 IU, 1X/DAY
     Route: 065
  22. INSULIN LISPRO [Concomitant]
     Active Substance: INSULIN LISPRO
     Indication: Type 1 diabetes mellitus
     Dosage: 7 IU
     Route: 065
  23. INSULIN LISPRO [Concomitant]
     Active Substance: INSULIN LISPRO
     Dosage: 3 IU
     Route: 065
  24. INSULIN LISPRO [Concomitant]
     Active Substance: INSULIN LISPRO
     Dosage: 5 IU
     Route: 065
  25. INSULIN LISPRO [Concomitant]
     Active Substance: INSULIN LISPRO
     Dosage: 2 IU
     Route: 065
  26. INSULIN LISPRO [Concomitant]
     Active Substance: INSULIN LISPRO
     Dosage: 9 IU
     Route: 065
  27. INSULIN LISPRO [Concomitant]
     Active Substance: INSULIN LISPRO
     Dosage: 6 IU
     Route: 065
  28. INSULIN LISPRO [Concomitant]
     Active Substance: INSULIN LISPRO
     Dosage: 8 IU
     Route: 065
  29. INSULIN LISPRO [Concomitant]
     Active Substance: INSULIN LISPRO
     Dosage: 10 IU
     Route: 065
  30. INSULIN LISPRO [Concomitant]
     Active Substance: INSULIN LISPRO
     Dosage: 1 IU
     Route: 065
  31. INSULIN LISPRO [Concomitant]
     Active Substance: INSULIN LISPRO
     Dosage: 4 IU
     Route: 065
  32. INSULIN LISPRO [Concomitant]
     Active Substance: INSULIN LISPRO
     Dosage: 7 IU, 1X/DAY
     Route: 065
  33. INSULIN LISPRO [Concomitant]
     Active Substance: INSULIN LISPRO
     Dosage: 1 IU, 1X/DAY
     Route: 065
  34. INSULIN LISPRO [Concomitant]
     Active Substance: INSULIN LISPRO
     Dosage: 5 IU, 1X/DAY
     Route: 065
  35. INSULIN LISPRO [Concomitant]
     Active Substance: INSULIN LISPRO
     Dosage: 8 IU, 1X/DAY
     Route: 065
  36. INSULIN LISPRO [Concomitant]
     Active Substance: INSULIN LISPRO
     Dosage: 2 IU, 1X/DAY
     Route: 065
  37. MIDODRINE [Concomitant]
     Active Substance: MIDODRINE
     Indication: Orthostatic hypotension
     Dosage: 5 MG, UNK
     Route: 065
  38. MIDODRINE [Concomitant]
     Active Substance: MIDODRINE
     Dosage: 5 MG, 3X/DAY
     Route: 065
  39. VENLAFAXINE [Concomitant]
     Active Substance: VENLAFAXINE HYDROCHLORIDE
     Indication: Pain
     Dosage: UNK
     Route: 065
  40. VENLAFAXINE [Concomitant]
     Active Substance: VENLAFAXINE HYDROCHLORIDE
     Indication: Anxiety

REACTIONS (1)
  - Therapy non-responder [Unknown]
